FAERS Safety Report 5517408-3 (Version None)
Quarter: 2007Q4

REPORT INFORMATION
  Report Type: 
  Country: None (occurrence: None)
  Receive Date: 20071114
  Receipt Date: 20071031
  Transmission Date: 20080405
  Serious: Yes (Disabling)
  Sender: FDA-Public Use
  Company Number: GB-RANBAXY-2007RR-11188

PATIENT

DRUGS (10)
  1. GABAPENTIN BASICS B 600MG FILMTABLETTEN [Suspect]
     Indication: NEURALGIA
     Dosage: 300 MG, BID
     Route: 048
     Dates: start: 20051001, end: 20051201
  2. ATENOLOL TABLETS BP 50MG [Concomitant]
     Dosage: 50 MG, QD
  3. CO-CODAMOL [Concomitant]
     Dosage: 2 DF, PRN
  4. DIAZEPAM TABLETS BP 10MG [Concomitant]
     Dosage: 10 MG, PRN
  5. ENALAPRIL MALEATE [Concomitant]
     Dosage: 20 MG, QD
  6. OXERUTINS [Concomitant]
     Dosage: 250 MG, BID
  7. PROCTOSEDYL [Concomitant]
     Dosage: 30 MG, UNK
  8. TEMAZEPAM [Concomitant]
     Dosage: 40 MG, QD
  9. LEVOTHYROXINE SODIUM [Concomitant]
     Dosage: 100 UG, QD
  10. WARFARIN SODIUM [Concomitant]
     Dosage: 4.5 MG, QD

REACTIONS (5)
  - GINGIVAL PAIN [None]
  - LIP PAIN [None]
  - MOUTH ULCERATION [None]
  - RASH GENERALISED [None]
  - TOOTHACHE [None]
